FAERS Safety Report 9390825 (Version 5)
Quarter: 2013Q3

REPORT INFORMATION
  Report Type: Spontaneous
  Country: IE (occurrence: IE)
  Receive Date: 20130709
  Receipt Date: 20130828
  Transmission Date: 20140515
  Serious: Yes (Hospitalization)
  Sender: FDA-Public Use
  Company Number: IE-AMGEN-IRLSP2013047207

PATIENT
  Age: 60 Year
  Sex: Female
  Weight: 94 kg

DRUGS (3)
  1. NEULASTA [Suspect]
     Indication: PROPHYLAXIS
     Dosage: 6 MG, AFTER CHEMO
     Route: 058
     Dates: start: 20130621, end: 20130621
  2. TAXOL [Suspect]
     Indication: ENDOMETRIAL CANCER
     Dosage: UNK
     Route: 065
     Dates: start: 20130620
  3. CARBOPLATIN [Concomitant]
     Indication: ENDOMETRIAL CANCER
     Dosage: UNK
     Dates: start: 20130620

REACTIONS (3)
  - Rash erythematous [Recovering/Resolving]
  - Skin exfoliation [Unknown]
  - Rash pruritic [Recovering/Resolving]
